FAERS Safety Report 6089762-8 (Version None)
Quarter: 2009Q1

REPORT INFORMATION
  Report Type: 
  Country: None (occurrence: None)
  Receive Date: 20090220
  Receipt Date: 20090127
  Transmission Date: 20090719
  Serious: Yes (Death, Hospitalization)
  Sender: FDA-Public Use
  Company Number: 235494J08USA

PATIENT
  Age: 46 Year
  Sex: Male
  Weight: 74 kg

DRUGS (1)
  1. REBIF [Suspect]
     Indication: MULTIPLE SCLEROSIS
     Dosage: 8.8 MCG, NOT REPORTED, NOT REPORTED
     Dates: start: 20080522, end: 20080525

REACTIONS (24)
  - BRONCHIAL SECRETION RETENTION [None]
  - BULLOUS LUNG DISEASE [None]
  - CARDIAC ARREST [None]
  - CENTRAL NERVOUS SYSTEM NECROSIS [None]
  - CEREBRAL HAEMORRHAGE [None]
  - CONDITION AGGRAVATED [None]
  - DEMYELINATION [None]
  - ELECTROMECHANICAL DISSOCIATION [None]
  - EMPHYSEMA [None]
  - FALL [None]
  - GAMMOPATHY [None]
  - HEAD INJURY [None]
  - HYPERTENSION [None]
  - HYPOXIC ENCEPHALOPATHY [None]
  - IMMOBILE [None]
  - MULTIPLE SCLEROSIS [None]
  - NO THERAPEUTIC RESPONSE [None]
  - PLEURAL EFFUSION [None]
  - PNEUMONIA ASPIRATION [None]
  - PULMONARY FIBROSIS [None]
  - RESPIRATORY FAILURE [None]
  - RETCHING [None]
  - SCAR [None]
  - VOMITING [None]
